FAERS Safety Report 6378545-7 (Version None)
Quarter: 2009Q3

REPORT INFORMATION
  Report Type: 
  Country: None (occurrence: None)
  Receive Date: 20090928
  Receipt Date: 20090924
  Transmission Date: 20100115
  Serious: Yes (Life-Threatening, Other)
  Sender: FDA-Public Use
  Company Number: BR-JNJFOC-20090907592

PATIENT
  Age: 56 Year
  Sex: Male

DRUGS (4)
  1. HALOPERIDOL DECANOATO [Suspect]
     Dosage: TWO AMPOULES
     Route: 065
     Dates: start: 19990901
  2. HALOPERIDOL DECANOATO [Suspect]
     Indication: PSYCHOTIC DISORDER
     Dosage: TWO AMPOULES
     Route: 065
     Dates: start: 19990901
  3. SULBUTIAMINE [Concomitant]
     Indication: NEUROMYOPATHY
     Route: 065
  4. CITALOPRAM [Concomitant]
     Route: 065

REACTIONS (6)
  - HYPERTENSION [None]
  - INFARCTION [None]
  - MEDICATION ERROR [None]
  - PANIC DISORDER [None]
  - SOCIAL PHOBIA [None]
  - TYPE 2 DIABETES MELLITUS [None]
